FAERS Safety Report 7316110-5 (Version None)
Quarter: 2011Q1

REPORT INFORMATION
  Report Type: 
  Country: None (occurrence: None)
  Receive Date: 20110225
  Receipt Date: 20110224
  Transmission Date: 20110831
  Serious: Yes (Life-Threatening)
  Sender: FDA-Public Use
  Company Number: US-JNJFOC-20110205906

PATIENT
  Sex: Female
  Weight: 69.85 kg

DRUGS (2)
  1. STELARA [Suspect]
     Route: 058
  2. STELARA [Suspect]
     Indication: PSORIASIS
     Route: 058

REACTIONS (1)
  - BREAST CANCER [None]
